FAERS Safety Report 4351863-X (Version None)
Quarter: 2004Q2

REPORT INFORMATION
  Report Type: 
  Country: None (occurrence: None)
  Receive Date: 20040429
  Receipt Date: 20031020
  Transmission Date: 20050107
  Serious: No
  Sender: FDA-Public Use
  Company Number: 2003-110769-NL

PATIENT
  Sex: Female

DRUGS (4)
  1. NUVARING [Suspect]
     Dosage: DF DAILY VAGINAL
     Route: 067
     Dates: start: 20030807
  2. EPHEDRINE [Concomitant]
  3. CRANBERRY SUPPLEMENTS [Concomitant]
  4. YEAST INFECTINO MEDICATION [Concomitant]

REACTIONS (2)
  - DEVICE FAILURE [None]
  - MEDICAL DEVICE COMPLICATION [None]
